FAERS Safety Report 24318108 (Version 1)
Quarter: 2024Q3

REPORT INFORMATION
  Report Type: Spontaneous
  Country: US (occurrence: None)
  Receive Date: 20240912
  Receipt Date: 20240912
  Transmission Date: 20241017
  Serious: Yes (Life-Threatening, Hospitalization, Disabling)
  Sender: Public
  Company Number: None

PATIENT
  Age: 33 Year
  Sex: Female
  Weight: 112.04 kg

DRUGS (3)
  1. LAMOTRIGINE [Suspect]
     Active Substance: LAMOTRIGINE
     Indication: Anxiety
     Dosage: 1 TABLET , 1 PILL IN THE MORNIND, 1 PILL AT NIGHT TAKEN BY MOUTH
     Route: 048
     Dates: start: 20240520, end: 20240613
  2. LISINOPRIL [Concomitant]
     Active Substance: LISINOPRIL
  3. COLLAGEN [Concomitant]
     Active Substance: COLLAGEN

REACTIONS (6)
  - Stevens-Johnson syndrome [None]
  - Erythema multiforme [None]
  - Toxic epidermal necrolysis [None]
  - Overlap syndrome [None]
  - Impaired work ability [None]
  - Photophobia [None]

NARRATIVE: CASE EVENT DATE: 20240609
